FAERS Safety Report 13120163 (Version 2)
Quarter: 2017Q1

REPORT INFORMATION
  Report Type: Spontaneous
  Country: US (occurrence: US)
  Receive Date: 20170117
  Receipt Date: 20170208
  Transmission Date: 20170428
  Serious: No
  Sender: FDA-Public Use
  Company Number: US-BIOGEN-2017BI00342398

PATIENT
  Sex: Male

DRUGS (1)
  1. AVONEX [Suspect]
     Active Substance: INTERFERON BETA-1A
     Indication: MULTIPLE SCLEROSIS
     Route: 030
     Dates: start: 20110302, end: 20110602

REACTIONS (4)
  - General symptom [Unknown]
  - Drug intolerance [Unknown]
  - Secondary progressive multiple sclerosis [Unknown]
  - Hypersensitivity [Unknown]
